FAERS Safety Report 9053315 (Version 2)
Quarter: 2013Q3

REPORT INFORMATION
  Report Type: Spontaneous
  Country: FR (occurrence: FR)
  Receive Date: 20130207
  Receipt Date: 20130716
  Transmission Date: 20140515
  Serious: Yes (Hospitalization)
  Sender: FDA-Public Use
  Company Number: FR-B.I. PHARMACEUTICALS,INC./RIDGEFIELD-2013-FF-00341FF

PATIENT
  Age: 68 Year
  Sex: Male

DRUGS (2)
  1. PRADAXA [Suspect]
     Route: 048
     Dates: start: 20121112, end: 20121212
  2. CORDARONE [Suspect]
     Route: 048
     Dates: start: 20121204, end: 20121208

REACTIONS (2)
  - Coagulation factor V level decreased [Recovered/Resolved]
  - Cholestasis [Recovered/Resolved]
